FAERS Safety Report 23642130 (Version 1)
Quarter: 2024Q1

REPORT INFORMATION
  Report Type: Spontaneous
  Country: US (occurrence: None)
  Receive Date: 20240315
  Receipt Date: 20240315
  Transmission Date: 20240410
  Serious: Yes (Other)
  Sender: FDA-Public Use
  Company Number: None

PATIENT
  Age: 78 Year
  Sex: Male

DRUGS (23)
  1. AMBRISENTAN [Suspect]
     Active Substance: AMBRISENTAN
     Indication: Pulmonary arterial hypertension
     Dosage: FREQUENCY : DAILY;?
     Route: 048
     Dates: start: 20190813
  2. TADALAFIL [Concomitant]
     Active Substance: TADALAFIL
  3. LOSARTAN [Concomitant]
     Active Substance: LOSARTAN
  4. POTASSIUM CHLORIDE [Concomitant]
     Active Substance: POTASSIUM CHLORIDE
  5. FAMOTIDINE [Concomitant]
  6. COLCHICINE [Concomitant]
     Active Substance: COLCHICINE
  7. ELIQUIS [Concomitant]
     Active Substance: APIXABAN
  8. SERTRALINE [Concomitant]
  9. LAMOTRIGINE [Concomitant]
     Active Substance: LAMOTRIGINE
  10. METOPROLOL [Concomitant]
  11. PREGABALIN [Concomitant]
  12. PRADAXA [Concomitant]
     Active Substance: DABIGATRAN ETEXILATE MESYLATE
  13. PYRIDOSTIGMINE [Concomitant]
     Active Substance: PYRIDOSTIGMINE
  14. latanoprost opht drop [Concomitant]
  15. ALDACTAZIDE [Concomitant]
     Active Substance: HYDROCHLOROTHIAZIDE\SPIRONOLACTONE
  16. MINOXIDIL [Concomitant]
     Active Substance: MINOXIDIL
  17. CARBAMAZEPINE [Concomitant]
     Active Substance: CARBAMAZEPINE
  18. ATORVASTATIN [Concomitant]
  19. TORSEMIDE [Concomitant]
     Active Substance: TORSEMIDE
  20. FLONASE [Concomitant]
     Active Substance: FLUTICASONE PROPIONATE
  21. aspirin [Concomitant]
  22. VITAMINS [Concomitant]
     Active Substance: VITAMINS
  23. refresh plus opht dropperette [Concomitant]

REACTIONS (2)
  - Fall [None]
  - Rib fracture [None]

NARRATIVE: CASE EVENT DATE: 20240307
